FAERS Safety Report 7889624-7 (Version None)
Quarter: 2011Q4

REPORT INFORMATION
  Report Type: 
  Country: None (occurrence: None)
  Receive Date: 20111103
  Receipt Date: 20111027
  Transmission Date: 20120403
  Serious: Yes (Hospitalization)
  Sender: FDA-Public Use
  Company Number: US-B.I. PHARMACEUTICALS,INC./RIDGEFIELD-2011-BP-25081BP

PATIENT
  Sex: Female

DRUGS (11)
  1. OMEPRAZOLE [Concomitant]
     Route: 048
  2. PLAQUENIL [Concomitant]
     Indication: RHEUMATOID ARTHRITIS
     Route: 048
  3. CARDIZEM [Concomitant]
     Indication: ATRIAL FIBRILLATION
     Route: 048
  4. METHOTREXATE [Concomitant]
     Indication: RHEUMATOID ARTHRITIS
     Dosage: 2.5 MG
     Route: 048
  5. CALTRATE 600 [Concomitant]
     Indication: OSTEOPOROSIS
     Route: 048
  6. PRADAXA [Suspect]
     Indication: ATRIAL FIBRILLATION
     Dosage: 300 MG
     Route: 048
  7. RECLAST [Concomitant]
     Indication: OSTEOPOROSIS
  8. DIOVAN [Concomitant]
     Indication: HYPERTENSION
     Route: 048
  9. FOLIC ACID [Concomitant]
     Route: 048
  10. CENTRUM SILVER [Concomitant]
     Indication: ROUTINE HEALTH MAINTENANCE
     Route: 048
  11. LASIX [Concomitant]
     Indication: OEDEMA PERIPHERAL
     Route: 048

REACTIONS (2)
  - FALL [None]
  - PELVIC FRACTURE [None]
